FAERS Safety Report 18922575 (Version 1)
Quarter: 2021Q1

REPORT INFORMATION
  Report Type: Spontaneous
  Country: US (occurrence: US)
  Receive Date: 20210222
  Receipt Date: 20210222
  Transmission Date: 20210420
  Serious: No
  Sender: FDA-Public Use
  Company Number: None

PATIENT
  Age: 5 Year
  Sex: Male
  Weight: 17.78 kg

DRUGS (1)
  1. CLONIDINE 0.1 MG [Suspect]
     Active Substance: CLONIDINE
     Indication: PSYCHOMOTOR HYPERACTIVITY
     Dosage: ?          OTHER FREQUENCY:1/2 TAB AM;?
     Route: 048
     Dates: start: 20210205, end: 20210212

REACTIONS (1)
  - Enuresis [None]

NARRATIVE: CASE EVENT DATE: 20210212
